FAERS Safety Report 8035546-0 (Version None)
Quarter: 2012Q1

REPORT INFORMATION
  Report Type: 
  Country: None (occurrence: None)
  Receive Date: 20120110
  Receipt Date: 20120110
  Transmission Date: 20120608
  Serious: Yes (Hospitalization)
  Sender: FDA-Public Use
  Company Number: None

PATIENT
  Sex: Female
  Weight: 63.5036 kg

DRUGS (1)
  1. DIOVAN [Suspect]
     Indication: HYPERTENSION
     Dosage: 1 TABLET A DAY MOUTH
     Route: 048
     Dates: start: 20110629, end: 20110728

REACTIONS (15)
  - BACK PAIN [None]
  - DECREASED APPETITE [None]
  - PALPITATIONS [None]
  - ABDOMINAL DISCOMFORT [None]
  - ASTHENIA [None]
  - WHEEZING [None]
  - COUGH [None]
  - HEART RATE IRREGULAR [None]
  - DYSPNOEA [None]
  - OEDEMA PERIPHERAL [None]
  - OROPHARYNGEAL PAIN [None]
  - HEADACHE [None]
  - WEIGHT DECREASED [None]
  - CHEST DISCOMFORT [None]
  - EAR DISORDER [None]
